FAERS Safety Report 6501667-4 (Version None)
Quarter: 2009Q4

REPORT INFORMATION
  Report Type: 
  Country: None (occurrence: None)
  Receive Date: 20091216
  Receipt Date: 20091209
  Transmission Date: 20100525
  Serious: Yes (Hospitalization, Other)
  Sender: FDA-Public Use
  Company Number: DE-TEVA-168842ISR

PATIENT
  Sex: Female

DRUGS (3)
  1. COPAXONE [Suspect]
     Indication: MULTIPLE SCLEROSIS
     Route: 058
     Dates: start: 20080307, end: 20080312
  2. COPAXONE [Suspect]
     Route: 058
     Dates: start: 20091102
  3. PANTOPRAZOLE SODIUM [Suspect]

REACTIONS (1)
  - ACUTE HEPATIC FAILURE [None]
